FAERS Safety Report 6045829-1 (Version None)
Quarter: 2009Q1

REPORT INFORMATION
  Report Type: 
  Country: None (occurrence: None)
  Receive Date: 20090121
  Receipt Date: 20090113
  Transmission Date: 20090719
  Serious: Yes (Hospitalization)
  Sender: FDA-Public Use
  Company Number: IT-ROXANE LABORATORIES, INC.-2009-RO-00055RO

PATIENT
  Age: 35 Year
  Sex: Female

DRUGS (2)
  1. LITHIUM CARBONATE [Suspect]
     Indication: BIPOLAR DISORDER
     Dosage: 1200MG
  2. SODIUM CHLORIDE [Concomitant]
     Indication: ILEUS PARALYTIC
     Route: 042

REACTIONS (2)
  - ILEUS PARALYTIC [None]
  - THERAPEUTIC AGENT TOXICITY [None]
